FAERS Safety Report 22009166 (Version 1)
Quarter: 2023Q1

REPORT INFORMATION
  Report Type: Spontaneous
  Country: IT (occurrence: IT)
  Receive Date: 20230220
  Receipt Date: 20230220
  Transmission Date: 20230418
  Serious: Yes (Other)
  Sender: FDA-Public Use
  Company Number: None

PATIENT
  Age: 71 Year
  Sex: Male

DRUGS (2)
  1. PEMETREXED [Suspect]
     Active Substance: PEMETREXED
     Indication: Pleural mesothelioma malignant
     Dosage: UNK (500 MG/MQ GIORNO 1 DI CIASCUN CICLO CON CICLI RIPETUTI OGNI 21 GIORNI (SEI CICLI COMPLESSIVI))
     Route: 042
     Dates: start: 20210915
  2. CARBOPLATIN [Suspect]
     Active Substance: CARBOPLATIN
     Indication: Pleural mesothelioma malignant
     Dosage: UNK (AUC 5 AL GIORNO 1 DI CIASCUN CICLO CON CICLI RIPETUTI OGNI 21 GIORNI (6 CICLI COMPLESSIVI))
     Route: 042
     Dates: start: 20210915

REACTIONS (1)
  - Leukaemia [Not Recovered/Not Resolved]

NARRATIVE: CASE EVENT DATE: 20230123
